FAERS Safety Report 4537644-2 (Version None)
Quarter: 2004Q4

REPORT INFORMATION
  Report Type: 
  Country: None (occurrence: None)
  Receive Date: 20041208
  Receipt Date: 20040618
  Transmission Date: 20050328
  Serious: Yes (Hospitalization)
  Sender: FDA-Public Use
  Company Number: 139077USA

PATIENT
  Age: 60 Year
  Sex: Female
  Weight: 86.3 kg

DRUGS (1)
  1. DIPYRIDAMOLE [Suspect]
     Indication: CARDIAC STRESS TEST
     Dosage: 49.2 MILLIGRAM ONCE INTRAVENOUS (NOS)
     Route: 042
     Dates: start: 20040601, end: 20040601

REACTIONS (1)
  - CONVULSION [None]
